FAERS Safety Report 19658731 (Version 1)
Quarter: 2021Q3

REPORT INFORMATION
  Report Type: Spontaneous
  Country: AU (occurrence: AU)
  Receive Date: 20210805
  Receipt Date: 20210805
  Transmission Date: 20211014
  Serious: Yes (Other)
  Sender: FDA-Public Use
  Company Number: AU-ALKEM LABORATORIES LIMITED-AU-ALKEM-2021-04646

PATIENT
  Age: 22 Year
  Sex: Male

DRUGS (5)
  1. TEMAZEPAM. [Concomitant]
     Active Substance: TEMAZEPAM
     Indication: PRODUCT USED FOR UNKNOWN INDICATION
     Dosage: UNK
     Route: 065
  2. OLANZAPINE. [Suspect]
     Active Substance: OLANZAPINE
     Indication: PRODUCT USED FOR UNKNOWN INDICATION
     Dosage: UNK
     Route: 065
  3. CLOMIPRAMINE HYDROCHLORIDE. [Suspect]
     Active Substance: CLOMIPRAMINE HYDROCHLORIDE
     Indication: PRODUCT USED FOR UNKNOWN INDICATION
     Dosage: UNK
     Route: 065
  4. CLOPINE [Suspect]
     Active Substance: CLOZAPINE
     Indication: PRODUCT USED FOR UNKNOWN INDICATION
     Dosage: UNK
     Route: 065
  5. LORAZEPAM. [Concomitant]
     Active Substance: LORAZEPAM
     Indication: PRODUCT USED FOR UNKNOWN INDICATION
     Dosage: UNK
     Route: 065

REACTIONS (20)
  - Electrocardiogram ST segment elevation [Unknown]
  - C-reactive protein increased [Unknown]
  - Acute myocardial infarction [Unknown]
  - Blood pH decreased [Unknown]
  - Lymphocyte count decreased [Unknown]
  - Oxygen saturation decreased [Unknown]
  - Tachycardia [Unknown]
  - Cardiac disorder [Unknown]
  - Regurgitation [Unknown]
  - Troponin I increased [Unknown]
  - Myocarditis [Unknown]
  - Bundle branch block [Unknown]
  - Chest pain [Unknown]
  - Right ventricular hypertrophy [Unknown]
  - Aspartate aminotransferase increased [Unknown]
  - Laboratory test abnormal [Unknown]
  - Anxiety [Unknown]
  - Brain natriuretic peptide increased [Unknown]
  - PCO2 increased [Unknown]
  - PO2 decreased [Unknown]
